FAERS Safety Report 15552730 (Version 1)
Quarter: 2018Q4

REPORT INFORMATION
  Report Type: Spontaneous
  Country: US (occurrence: US)
  Receive Date: 20181025
  Receipt Date: 20181025
  Transmission Date: 20190205
  Serious: No
  Sender: FDA-Public Use
  Company Number: US-BAUSCH-BL-2017-031820

PATIENT
  Age: 67 Year
  Sex: Female

DRUGS (2)
  1. LOTEMAX [Suspect]
     Active Substance: LOTEPREDNOL ETABONATE
     Indication: INFLAMMATION
     Dosage: 1 (USED ONCE)
     Route: 065
     Dates: start: 20171115, end: 20171115
  2. SOOTHE NIGHT TIME [Concomitant]
     Active Substance: MINERAL OIL\PETROLATUM
     Indication: DRY EYE
     Dosage: 1 APPLICATION EVERY COUPLE HOURS
     Route: 065

REACTIONS (3)
  - Application site pain [Recovering/Resolving]
  - Off label use [Recovered/Resolved]
  - Application site irritation [Recovering/Resolving]

NARRATIVE: CASE EVENT DATE: 20171115
